FAERS Safety Report 9730836 (Version 2)
Quarter: 2013Q4

REPORT INFORMATION
  Report Type: Spontaneous
  Country: JP (occurrence: JP)
  Receive Date: 20131203
  Receipt Date: 20131203
  Transmission Date: 20140711
  Serious: Yes (Other)
  Sender: FDA-Public Use
  Company Number: JP-BRISTOL-MYERS SQUIBB COMPANY-19848225

PATIENT
  Age: 71 Year
  Sex: Male

DRUGS (14)
  1. METGLUCO [Suspect]
     Indication: DIABETES MELLITUS
     Route: 048
     Dates: start: 20131107, end: 20131115
  2. SIGMART [Concomitant]
     Route: 048
  3. NEXIUM [Concomitant]
     Route: 048
  4. LASIX [Concomitant]
     Route: 048
  5. LANTUS [Concomitant]
     Indication: DIABETES MELLITUS
     Route: 058
  6. HUMALOG [Concomitant]
     Indication: DIABETES MELLITUS
     Dosage: INJ
     Route: 058
  7. BAYASPIRIN [Concomitant]
     Route: 048
  8. RIVAROXABAN [Concomitant]
     Route: 048
  9. FEBUXOSTAT [Concomitant]
  10. ITOROL [Concomitant]
     Route: 048
  11. HERBESSER R [Concomitant]
     Route: 048
  12. CRESTOR [Concomitant]
     Route: 048
  13. SPIRONOLACTONE [Concomitant]
     Route: 048
  14. MYSLEE [Concomitant]
     Route: 048

REACTIONS (1)
  - Renal impairment [Recovered/Resolved]
